FAERS Safety Report 5741058-7 (Version None)
Quarter: 2008Q2

REPORT INFORMATION
  Report Type: 
  Country: None (occurrence: None)
  Receive Date: 20080516
  Receipt Date: 20080505
  Transmission Date: 20081010
  Serious: Yes (Other)
  Sender: FDA-Public Use
  Company Number: US-PFIZER INC-2008039750

PATIENT
  Sex: Female
  Weight: 61.2 kg

DRUGS (1)
  1. DILANTIN [Suspect]
     Indication: EPILEPSY

REACTIONS (8)
  - ANAEMIA [None]
  - ANTICONVULSANT DRUG LEVEL DECREASED [None]
  - ASTHENIA [None]
  - BLOOD TEST ABNORMAL [None]
  - CONVULSION [None]
  - GASTROOESOPHAGEAL REFLUX DISEASE [None]
  - HAEMOGLOBIN DECREASED [None]
  - WEIGHT INCREASED [None]
